FAERS Safety Report 4385050-6 (Version None)
Quarter: 2004Q2

REPORT INFORMATION
  Report Type: 
  Country: None (occurrence: None)
  Receive Date: 20040625
  Receipt Date: 20040616
  Transmission Date: 20050107
  Serious: Yes (Hospitalization)
  Sender: FDA-Public Use
  Company Number: FR-GLAXOSMITHKLINE-B0336399A

PATIENT
  Age: 1 Day
  Sex: Female
  Weight: 3.5 kg

DRUGS (3)
  1. DEROXAT [Suspect]
     Indication: ILL-DEFINED DISORDER
     Dosage: 20MG PER DAY
  2. LARGACTIL [Suspect]
     Dosage: 25MG PER DAY
  3. ZYPREXA [Concomitant]

REACTIONS (6)
  - DRUG EXPOSURE DURING PREGNANCY [None]
  - FEEDING PROBLEM IN NEWBORN [None]
  - HEPATOMEGALY [None]
  - HYPOTONIA NEONATAL [None]
  - RESPIRATORY DISTRESS [None]
  - WEIGHT GAIN POOR [None]
